FAERS Safety Report 4277728-X (Version None)
Quarter: 2004Q1

REPORT INFORMATION
  Report Type: 
  Country: None (occurrence: None)
  Receive Date: 20040121
  Receipt Date: 20040105
  Transmission Date: 20041129
  Serious: Yes (Hospitalization)
  Sender: FDA-Public Use
  Company Number: 2004JP000039

PATIENT
  Age: 21 Year
  Sex: Female

DRUGS (1)
  1. PROGRAF [Suspect]
     Indication: LIVER TRANSPLANT

REACTIONS (3)
  - CONFUSIONAL STATE [None]
  - HYPERVENTILATION [None]
  - NEUROLOGICAL SYMPTOM [None]
